FAERS Safety Report 21036660 (Version 4)
Quarter: 2022Q3

REPORT INFORMATION
  Report Type: Report from Study
  Country: PT (occurrence: PT)
  Receive Date: 20220702
  Receipt Date: 20220906
  Transmission Date: 20221027
  Serious: No
  Sender: FDA-Public Use
  Company Number: PT-NOVARTISPH-NVSC2021PT181790

PATIENT
  Age: 63 Year
  Sex: Male
  Weight: 81 kg

DRUGS (35)
  1. LUTATHERA [Suspect]
     Active Substance: LUTETIUM OXODOTREOTIDE LU-177
     Indication: Gastroenteropancreatic neuroendocrine tumour disease
     Dosage: 199 MCI
     Route: 065
  2. LUTATHERA [Suspect]
     Active Substance: LUTETIUM OXODOTREOTIDE LU-177
     Dosage: 199 MCI
     Route: 065
     Dates: start: 20200213
  3. LUTATHERA [Suspect]
     Active Substance: LUTETIUM OXODOTREOTIDE LU-177
     Dosage: 198 MCI
     Route: 065
     Dates: start: 20200416
  4. LUTATHERA [Suspect]
     Active Substance: LUTETIUM OXODOTREOTIDE LU-177
     Dosage: 196 MCI
     Route: 065
     Dates: start: 20200805, end: 20200805
  5. OCTREOTIDE [Concomitant]
     Active Substance: OCTREOTIDE
     Indication: Product used for unknown indication
     Dosage: 20 MG
     Route: 058
     Dates: start: 201606, end: 201712
  6. OCTREOTIDE [Concomitant]
     Active Substance: OCTREOTIDE
     Dosage: 30 MG
     Route: 058
     Dates: start: 201801, end: 201811
  7. OCTREOTIDE [Concomitant]
     Active Substance: OCTREOTIDE
     Dosage: 60 MG
     Route: 058
     Dates: start: 201811
  8. AMINOPLASMAL HEPA [Concomitant]
     Indication: Prophylaxis
     Dosage: UNK
     Route: 042
     Dates: start: 20190904, end: 20190904
  9. AMINOPLASMAL HEPA [Concomitant]
     Indication: Nephropathy toxic
     Dosage: UNK (AMINO ACID SOLUTION)
     Route: 042
     Dates: start: 20200213, end: 20200213
  10. AMINOPLASMAL HEPA [Concomitant]
     Dosage: UNK (AMINO ACID SOLUTION)
     Route: 042
     Dates: start: 20200416, end: 20200416
  11. AMINOPLASMAL HEPA [Concomitant]
     Dosage: UNK (AMINO ACID SOLUTION)
     Route: 042
     Dates: start: 20200805, end: 20200805
  12. AMINOPLASMAL HEPA [Concomitant]
     Dosage: UNK (15.4 G/L; 2.5 L) (400 ML/H)
     Route: 042
  13. FUROSEMIDE [Concomitant]
     Active Substance: FUROSEMIDE
     Indication: Hydronephrosis
     Dosage: UNK
     Route: 042
     Dates: start: 20190904, end: 20190904
  14. FUROSEMIDE [Concomitant]
     Active Substance: FUROSEMIDE
     Dosage: UNK
     Route: 042
     Dates: start: 20200416, end: 20200416
  15. FUROSEMIDE [Concomitant]
     Active Substance: FUROSEMIDE
     Dosage: 20 MG (SINGLE INJECTION)
     Route: 042
  16. HEMOFISSURAL [Concomitant]
     Indication: Anal fissure
     Dosage: UNK UNK, BID (1 APPLICATION TWICE A DAY)(CUTANEOUS PASTE FOR TOPICAL APPLICATION ON HAEMORRHOIDS)
     Route: 061
     Dates: start: 2020
  17. DILTIAZEM [Concomitant]
     Active Substance: DILTIAZEM
     Indication: Anal fissure
     Dosage: UNK (CUTANEOUS PASTE FOR TOPICAL APPLICATION ON HAEMORRHOIDS. TWO APPLICATIONS PER DAY)
     Route: 061
     Dates: start: 20200618
  18. ACETAMINOPHEN [Concomitant]
     Active Substance: ACETAMINOPHEN
     Indication: Anal fissure
     Dosage: UNK
     Route: 054
     Dates: start: 20201223
  19. ACETAMINOPHEN [Concomitant]
     Active Substance: ACETAMINOPHEN
     Indication: Anal abscess
     Dosage: UNK UNK, PRN (SOS)
     Route: 065
  20. METRONIDAZOLE [Concomitant]
     Active Substance: METRONIDAZOLE
     Indication: Anal fissure
     Dosage: UNK
     Route: 048
     Dates: start: 20201223, end: 2021
  21. METRONIDAZOLE [Concomitant]
     Active Substance: METRONIDAZOLE
     Indication: Anal abscess
     Dosage: UNK (8/8 H)
     Route: 065
  22. METAMIZOLE SODIUM [Concomitant]
     Active Substance: METAMIZOLE SODIUM
     Indication: Anal abscess
     Dosage: UNK
     Route: 048
     Dates: start: 20201230, end: 2021
  23. METAMIZOLE SODIUM [Concomitant]
     Active Substance: METAMIZOLE SODIUM
     Dosage: UNK (12/12 H)
     Route: 065
  24. CEFUROXIME [Concomitant]
     Active Substance: CEFUROXIME
     Indication: Anal abscess
     Dosage: UNK
     Route: 048
     Dates: start: 20201230, end: 20210107
  25. CEFUROXIME [Concomitant]
     Active Substance: CEFUROXIME
     Dosage: UNK (12/12H)
     Route: 065
  26. CLOBAZAM [Concomitant]
     Active Substance: CLOBAZAM
     Indication: Product used for unknown indication
     Dosage: 10 MG, QD (UNKNOWN DATE, BUT IN THE CLINICAL FILE, THERE IS EVIDENCE OF REGULAR PRESCRIPTION SINCE 1
     Route: 048
  27. INDAPAMIDE [Concomitant]
     Active Substance: INDAPAMIDE
     Indication: Hypertension
     Dosage: UNK
     Route: 048
     Dates: start: 20161212
  28. INDAPAMIDE [Concomitant]
     Active Substance: INDAPAMIDE
     Dosage: 2.5 MG, QD
     Route: 065
  29. PALONOSETRON [Concomitant]
     Active Substance: PALONOSETRON
     Indication: Prophylaxis
     Dosage: UNK
     Route: 042
     Dates: start: 20190904, end: 20190904
  30. PALONOSETRON [Concomitant]
     Active Substance: PALONOSETRON
     Dosage: UNK
     Route: 042
     Dates: start: 20200213, end: 20200213
  31. PALONOSETRON [Concomitant]
     Active Substance: PALONOSETRON
     Dosage: UNK
     Route: 042
     Dates: start: 20200416, end: 20200416
  32. PALONOSETRON [Concomitant]
     Active Substance: PALONOSETRON
     Dosage: UNK
     Route: 042
     Dates: start: 20200805, end: 20200805
  33. PALONOSETRON [Concomitant]
     Active Substance: PALONOSETRON
     Dosage: UNK, ONCE/SINGLE (SINGLE INJECTION)
     Route: 042
  34. METFORMIN [Concomitant]
     Active Substance: METFORMIN HYDROCHLORIDE
     Indication: Diabetes mellitus
     Dosage: UNK (NOT TAKING ORAL ANTIDIABETICS AND ONLY ON SURVEILLANCE UNTIL 12/OCT/2021, WHEN HE STARTS METFOR
     Route: 048
     Dates: start: 20211012
  35. METFORMIN [Concomitant]
     Active Substance: METFORMIN HYDROCHLORIDE
     Dosage: 500 MG, QD
     Route: 065

REACTIONS (9)
  - Gastrointestinal disorder [Recovered/Resolved]
  - Anxiety [Recovered/Resolved]
  - Abdominal distension [Recovered/Resolved]
  - Diarrhoea [Recovered/Resolved]
  - Hyperhidrosis [Recovered/Resolved]
  - Malaise [Recovered/Resolved]
  - Fatigue [Not Recovered/Not Resolved]
  - Nausea [Recovered/Resolved]
  - Abdominal distension [Recovered/Resolved]

NARRATIVE: CASE EVENT DATE: 20200416
